FAERS Safety Report 16971935 (Version 1)
Quarter: 2019Q4

REPORT INFORMATION
  Report Type: Spontaneous
  Country: US (occurrence: US)
  Receive Date: 20191029
  Receipt Date: 20191029
  Transmission Date: 20200122
  Serious: Yes (Hospitalization)
  Sender: FDA-Public Use
  Company Number: US-TEVA-2019-US-1128908

PATIENT
  Age: 66 Year
  Sex: Female

DRUGS (2)
  1. TRAZODONE [Suspect]
     Active Substance: TRAZODONE HYDROCHLORIDE
     Indication: OVERDOSE
     Dosage: MORE THAN 60 TABLETS
     Route: 065
  2. TYLENOL [Suspect]
     Active Substance: ACETAMINOPHEN
     Indication: OVERDOSE
     Dosage: MORE THAN 60 TABLETS
     Route: 065

REACTIONS (3)
  - Overdose [Unknown]
  - Electrocardiogram QT prolonged [Unknown]
  - Transaminases increased [Recovering/Resolving]
